FAERS Safety Report 21028150 (Version 5)
Quarter: 2022Q4

REPORT INFORMATION
  Report Type: Spontaneous
  Country: MX (occurrence: MX)
  Receive Date: 20220630
  Receipt Date: 20221216
  Transmission Date: 20230112
  Serious: No
  Sender: FDA-Public Use
  Company Number: MX-PFIZER INC-PV202200003960

PATIENT
  Age: 11 Year
  Sex: Male

DRUGS (1)
  1. GENOTROPIN [Suspect]
     Active Substance: SOMATROPIN
     Dosage: UNK
     Route: 058

REACTIONS (2)
  - Drug dose omission by device [Unknown]
  - Device physical property issue [Unknown]

NARRATIVE: CASE EVENT DATE: 20220616
